FAERS Safety Report 6719847-1 (Version None)
Quarter: 2010Q2

REPORT INFORMATION
  Report Type: 
  Country: None (occurrence: None)
  Receive Date: 20100511
  Receipt Date: 20100429
  Transmission Date: 20101027
  Serious: Yes (Hospitalization)
  Sender: FDA-Public Use
  Company Number: PHHY2010FR25524

PATIENT
  Sex: Male
  Weight: 15.7 kg

DRUGS (1)
  1. ILARIS [Suspect]
     Dosage: 100 TO 150 MG EVERY 4 WEEKS
     Dates: start: 20091001, end: 20100225

REACTIONS (7)
  - ANAEMIA [None]
  - ERYTHEMA INFECTIOSUM [None]
  - ERYTHROPOIESIS ABNORMAL [None]
  - HAEMORRHAGE [None]
  - LYMPHADENOPATHY [None]
  - ROSAI-DORFMAN SYNDROME [None]
  - TOOTH EXTRACTION [None]
